FAERS Safety Report 17018075 (Version 1)
Quarter: 2019Q4

REPORT INFORMATION
  Report Type: Spontaneous
  Country: SE (occurrence: SE)
  Receive Date: 20191111
  Receipt Date: 20191111
  Transmission Date: 20200122
  Serious: Yes (Other)
  Sender: FDA-Public Use
  Company Number: SE-EXELIXIS-CABO-19025123

PATIENT
  Age: 71 Year
  Sex: Male

DRUGS (1)
  1. CABOMETYX [Suspect]
     Active Substance: CABOZANTINIB S-MALATE
     Indication: HEPATOCELLULAR CARCINOMA
     Dosage: 60 MG, QD (1 X 1)
     Route: 048
     Dates: start: 20190926, end: 20191015

REACTIONS (9)
  - Exfoliative rash [Unknown]
  - Skin ulcer [Unknown]
  - Encephalopathy [Unknown]
  - Skin reaction [Unknown]
  - Memory impairment [Unknown]
  - Blister [Unknown]
  - Confusional state [Unknown]
  - Abnormal behaviour [Unknown]
  - Rash erythematous [Unknown]

NARRATIVE: CASE EVENT DATE: 201910
